FAERS Safety Report 9143981 (Version 2)
Quarter: 2013Q1

REPORT INFORMATION
  Report Type: Spontaneous
  Country: US (occurrence: US)
  Receive Date: 20130306
  Receipt Date: 20130307
  Transmission Date: 20140127
  Serious: Yes (Other)
  Sender: FDA-Public Use
  Company Number: PHEH2013US004684

PATIENT
  Sex: Female

DRUGS (4)
  1. LOTREL [Suspect]
     Indication: HYPERTENSION
     Dosage: 1 DF (5 MG AMLO/20 MG BENAZEPRIL), BID
  2. BABY ASPIRIN [Concomitant]
  3. VITAMIN B12 [Concomitant]
  4. GLUCOVANCE [Concomitant]
     Indication: DIABETES MELLITUS

REACTIONS (2)
  - Diabetic complication [Unknown]
  - Drug eruption [Unknown]
